FAERS Safety Report 9820063 (Version 2)
Quarter: 2014Q2

REPORT INFORMATION
  Report Type: Spontaneous
  Country: US (occurrence: None)
  Receive Date: 20131223
  Receipt Date: 20140530
  Transmission Date: 20141212
  Serious: No
  Sender: FDA-Public Use
  Company Number: 222898

PATIENT
  Age: 55 Year
  Sex: Female

DRUGS (1)
  1. PICATO [Suspect]
     Indication: ACTINIC KERATOSIS
     Route: 061
     Dates: start: 20130602, end: 20130604

REACTIONS (6)
  - Application site swelling [None]
  - Application site vesicles [None]
  - Application site pain [None]
  - Application site pruritus [None]
  - Application site exfoliation [None]
  - Drug administered at inappropriate site [None]
